FAERS Safety Report 5485702-0 (Version None)
Quarter: 2007Q4

REPORT INFORMATION
  Report Type: 
  Country: None (occurrence: None)
  Receive Date: 20071015
  Receipt Date: 20071002
  Transmission Date: 20080405
  Serious: Yes (Other)
  Sender: FDA-Public Use
  Company Number: US-AMGEN-STX245890

PATIENT
  Sex: Female
  Weight: 81.7 kg

DRUGS (14)
  1. ENBREL [Suspect]
     Indication: PSORIATIC ARTHROPATHY
     Route: 058
     Dates: start: 20050119, end: 20070809
  2. ENBREL [Suspect]
     Indication: PSORIASIS
  3. LEXAPRO [Concomitant]
     Route: 048
  4. ZANAFLEX [Concomitant]
  5. TRAMADOL HCL [Concomitant]
     Route: 048
  6. TYLENOL (CAPLET) [Concomitant]
  7. LIPITOR [Concomitant]
     Route: 048
  8. FOSAMAX [Concomitant]
     Route: 048
  9. PREMARIN [Concomitant]
     Route: 048
  10. CALCIUM WITH VITAMIN D [Concomitant]
     Route: 048
  11. VITAMIN CAP [Concomitant]
     Route: 048
  12. BIOTIN [Concomitant]
  13. FISH OIL [Concomitant]
  14. VOLTAREN [Concomitant]
     Route: 048

REACTIONS (10)
  - AUTOANTIBODY TEST [None]
  - BLOOD CALCIUM DECREASED [None]
  - GASTRITIS [None]
  - HYPOALBUMINAEMIA [None]
  - HYPOGAMMAGLOBULINAEMIA [None]
  - LYMPHOID TISSUE HYPERPLASIA [None]
  - PSORIATIC ARTHROPATHY [None]
  - SYNOVITIS [None]
  - THROMBOCYTHAEMIA [None]
  - VITAMIN D DEFICIENCY [None]
